FAERS Safety Report 13978041 (Version 1)
Quarter: 2017Q3

REPORT INFORMATION
  Report Type: Spontaneous
  Country: US (occurrence: US)
  Receive Date: 20170915
  Receipt Date: 20170915
  Transmission Date: 20171128
  Serious: Yes (Death)
  Sender: FDA-Public Use
  Company Number: US-ASTELLAS-2017US037107

PATIENT
  Age: 90 Year
  Sex: Male

DRUGS (2)
  1. XTANDI [Suspect]
     Active Substance: ENZALUTAMIDE
     Indication: POLLAKIURIA
     Route: 048
     Dates: start: 20170819, end: 20170901
  2. XTANDI [Suspect]
     Active Substance: ENZALUTAMIDE
     Indication: NOCTURIA

REACTIONS (2)
  - Off label use [Unknown]
  - Death [Fatal]

NARRATIVE: CASE EVENT DATE: 20170901
